FAERS Safety Report 25423119 (Version 2)
Quarter: 2025Q3

REPORT INFORMATION
  Report Type: Spontaneous
  Country: EU (occurrence: EU)
  Receive Date: 20250611
  Receipt Date: 20250924
  Transmission Date: 20251020
  Serious: No
  Sender: SANDOZ
  Company Number: EU-SANDOZ-SDZ2025PT040163

PATIENT

DRUGS (1)
  1. OMNITROPE [Suspect]
     Active Substance: SOMATROPIN
     Indication: Product used for unknown indication
     Route: 065

REACTIONS (1)
  - Incorrect dose administered by device [Unknown]
